FAERS Safety Report 10061734 (Version 1)
Quarter: 2014Q2

REPORT INFORMATION
  Report Type: Spontaneous
  Country: US (occurrence: None)
  Receive Date: 20140404
  Receipt Date: 20140404
  Transmission Date: 20141212
  Serious: No
  Sender: FDA-Public Use
  Company Number: None

PATIENT
  Sex: 0

DRUGS (1)
  1. KENALOG INJ [Suspect]
     Dosage: KENALOG SHOT

REACTIONS (4)
  - Muscular weakness [None]
  - Headache [None]
  - Menstruation irregular [None]
  - Insomnia [None]
